FAERS Safety Report 10537503 (Version 1)
Quarter: 2014Q4

REPORT INFORMATION
  Report Type: Spontaneous
  Country: US (occurrence: None)
  Receive Date: 20141022
  Receipt Date: 20141022
  Transmission Date: 20150529
  Serious: Yes (Hospitalization, Other)
  Sender: FDA-Public Use
  Company Number: None

PATIENT
  Age: 21 Year
  Sex: Female
  Weight: 76.66 kg

DRUGS (1)
  1. AMITRIPTYLINE [Suspect]
     Active Substance: AMITRIPTYLINE
     Indication: PAIN IN EXTREMITY
     Dosage: 1 PILL ONCE DAILY TAKEN BY MOUTH
     Route: 048
     Dates: start: 20140918, end: 20141001

REACTIONS (15)
  - Tremor [None]
  - Aphasia [None]
  - Insomnia [None]
  - Pericarditis [None]
  - Costochondritis [None]
  - Muscular weakness [None]
  - Sensory loss [None]
  - Chest pain [None]
  - Syncope [None]
  - Economic problem [None]
  - Pain in extremity [None]
  - Vision blurred [None]
  - Drug withdrawal syndrome [None]
  - Abdominal pain lower [None]
  - Hypoaesthesia [None]

NARRATIVE: CASE EVENT DATE: 20141005
